FAERS Safety Report 5470545-4 (Version None)
Quarter: 2007Q3

REPORT INFORMATION
  Report Type: 
  Country: None (occurrence: None)
  Receive Date: 20070927
  Receipt Date: 20070927
  Transmission Date: 20080115
  Serious: No
  Sender: FDA-Public Use
  Company Number: None

PATIENT
  Age: 25 Year
  Sex: Male
  Weight: 113.3993 kg

DRUGS (1)
  1. SIMPLY SLEEP 25 MG TYLENOL PM [Suspect]
     Indication: INSOMNIA
     Dosage: 2 25 MG TABLETS
     Dates: start: 20070902, end: 20070905

REACTIONS (2)
  - CHEST PAIN [None]
  - INSOMNIA [None]
